FAERS Safety Report 4383116-8 (Version None)
Quarter: 2004Q2

REPORT INFORMATION
  Report Type: 
  Country: None (occurrence: None)
  Receive Date: 20040618
  Receipt Date: 20040607
  Transmission Date: 20050107
  Serious: Yes (Other)
  Sender: FDA-Public Use
  Company Number: ZONI001449

PATIENT
  Age: 61 Year
  Sex: Male

DRUGS (2)
  1. ZONEGRAN [Suspect]
     Indication: CONVULSION
     Dosage: 100 MG DAILY ORAL
     Route: 048
     Dates: start: 20040101, end: 20040601
  2. DILANTIN [Concomitant]

REACTIONS (3)
  - CHEST DISCOMFORT [None]
  - DIARRHOEA [None]
  - HEART RATE IRREGULAR [None]
